FAERS Safety Report 23955347 (Version 1)
Quarter: 2024Q2

REPORT INFORMATION
  Report Type: Spontaneous
  Country: NL (occurrence: NL)
  Receive Date: 20240610
  Receipt Date: 20240610
  Transmission Date: 20240715
  Serious: Yes (Life-Threatening, Hospitalization, Other)
  Sender: FDA-Public Use
  Company Number: NL-PIRAMAL CRITICAL CARE LIMITED-2024-PPL-000431

PATIENT

DRUGS (7)
  1. PIRITRAMIDE [Interacting]
     Active Substance: PIRITRAMIDE
     Indication: Analgesic therapy
     Dosage: 5 MILLIGRAM
  2. BACLOFEN [Interacting]
     Active Substance: BACLOFEN
     Indication: Product used for unknown indication
     Dosage: 364.5 MICROGRAM/DAY
     Route: 037
  3. BACLOFEN [Interacting]
     Active Substance: BACLOFEN
     Dosage: THREE BOLUSES OF 75 MCG/BOLUS PER DAY
     Route: 037
  4. REMIFENTANIL [Suspect]
     Active Substance: REMIFENTANIL
     Indication: Product used for unknown indication
     Dosage: UNK
  5. BACLOFEN [Concomitant]
     Active Substance: BACLOFEN
     Indication: Product used for unknown indication
     Dosage: 5 MILLIGRAM
     Route: 048
  6. CLONAZEPAM [Concomitant]
     Active Substance: CLONAZEPAM
     Indication: Product used for unknown indication
     Dosage: 1.5 MILLIGRAM
  7. GABAPENTIN [Concomitant]
     Active Substance: GABAPENTIN
     Indication: Product used for unknown indication
     Dosage: 600 MILLIGRAM

REACTIONS (3)
  - Apnoea [Recovered/Resolved]
  - Unresponsive to stimuli [Recovered/Resolved]
  - Drug interaction [Unknown]

NARRATIVE: CASE EVENT DATE: 20210101
